FAERS Safety Report 15036416 (Version 1)
Quarter: 2018Q2

REPORT INFORMATION
  Report Type: Spontaneous
  Country: FR (occurrence: FR)
  Receive Date: 20180620
  Receipt Date: 20180620
  Transmission Date: 20180711
  Serious: Yes (Hospitalization, Other)
  Sender: FDA-Public Use
  Company Number: FR-ASTELLAS-2018US027364

PATIENT
  Age: 73 Year
  Sex: Male

DRUGS (1)
  1. XTANDI [Suspect]
     Active Substance: ENZALUTAMIDE
     Indication: HORMONE-REFRACTORY PROSTATE CANCER
     Dosage: UNK, UNKNOWN FREQ.
     Route: 065
     Dates: start: 201709, end: 201805

REACTIONS (4)
  - Fall [Recovered/Resolved]
  - Transient ischaemic attack [Unknown]
  - Visual impairment [Unknown]
  - Clavicle fracture [Unknown]
